FAERS Safety Report 7731097-9 (Version None)
Quarter: 2011Q3

REPORT INFORMATION
  Report Type: 
  Country: None (occurrence: None)
  Receive Date: 20110906
  Receipt Date: 20110906
  Transmission Date: 20111222
  Serious: Yes (Disabling)
  Sender: FDA-Public Use
  Company Number: None

PATIENT
  Age: 23 Year
  Sex: Female
  Weight: 70.8 kg

DRUGS (3)
  1. VANCOMYCIN [Concomitant]
     Indication: SEPTIC EMBOLUS
     Dosage: 1.5 GM
     Route: 042
     Dates: start: 20110828, end: 20110829
  2. VANCOMYCIN [Concomitant]
     Indication: PULMONARY EMBOLISM
     Dosage: 1.5 GM
     Route: 042
     Dates: start: 20110828, end: 20110829
  3. VANCOMYCIN [Suspect]
     Indication: STAPHYLOCOCCAL BACTERAEMIA
     Dosage: 1.25 GM
     Route: 042
     Dates: start: 20110826, end: 20110827

REACTIONS (12)
  - SEPTIC EMBOLUS [None]
  - PULMONARY EMBOLISM [None]
  - RENAL TUBULAR NECROSIS [None]
  - NEPHROPATHY [None]
  - DYSPNOEA [None]
  - ENDOCARDITIS [None]
  - RENAL FAILURE ACUTE [None]
  - DEEP VEIN THROMBOSIS [None]
  - PYREXIA [None]
  - CHEST PAIN [None]
  - LUNG NEOPLASM [None]
  - STAPHYLOCOCCAL SEPSIS [None]
